FAERS Safety Report 9789096 (Version 3)
Quarter: 2014Q1

REPORT INFORMATION
  Report Type: Spontaneous
  Country: AU (occurrence: AU)
  Receive Date: 20131230
  Receipt Date: 20140217
  Transmission Date: 20141002
  Serious: Yes (Other)
  Sender: FDA-Public Use
  Company Number: PHHY2013AU151493

PATIENT
  Sex: 0

DRUGS (3)
  1. NEORAL [Suspect]
     Dosage: UNK UKN, UNK
  2. SIMULECT [Suspect]
     Dosage: UNK UKN, UNK
  3. TACROLIMUS [Suspect]
     Dosage: UNK UKN, UNK

REACTIONS (3)
  - Rheumatoid arthritis [Unknown]
  - Kidney transplant rejection [Unknown]
  - Drug ineffective [Unknown]
